FAERS Safety Report 7952479-6 (Version None)
Quarter: 2011Q4

REPORT INFORMATION
  Report Type: 
  Country: None (occurrence: None)
  Receive Date: 20111201
  Receipt Date: 20111117
  Transmission Date: 20120403
  Serious: Yes (Death, Hospitalization, Other)
  Sender: FDA-Public Use
  Company Number: US-WATSON-2011-19909

PATIENT
  Age: 55 Year
  Sex: Female

DRUGS (7)
  1. PREDNISONE TAB [Suspect]
     Indication: IMMUNOSUPPRESSION
     Dosage: UNK
     Route: 065
     Dates: start: 19870801, end: 19870901
  2. METHYLPEDNISOLONE SODIUM SUCCINATE [Suspect]
     Indication: IMMUNOSUPPRESSION
     Dosage: UNKNOWN DOSAGE, TAKEN FOR ONE MONTH
     Route: 065
     Dates: start: 19870701, end: 19870801
  3. PREDNISONE TAB [Suspect]
     Dosage: 10 MG, DAILY
     Route: 048
     Dates: start: 19870901, end: 19880201
  4. ORTHOCLONE OKT3 [Suspect]
     Indication: IMMUNOSUPPRESSION
     Dosage: UNK
  5. PREDNISONE TAB [Suspect]
     Dosage: 100 MG,  X4 DAYS
     Route: 065
     Dates: start: 19880201, end: 19880201
  6. PREDNISONE TAB [Suspect]
     Dosage: 20 MG, DAILY
     Route: 065
     Dates: start: 19880201, end: 19890101
  7. CYCLOSPORINE [Suspect]
     Indication: IMMUNOSUPPRESSION
     Route: 065

REACTIONS (18)
  - VASCULAR PSEUDOANEURYSM [None]
  - DYSPNOEA [None]
  - PNEUMONIA [None]
  - GLOBULINS INCREASED [None]
  - PROTEIN TOTAL INCREASED [None]
  - PLASMACYTOMA [None]
  - PANCYTOPENIA [None]
  - ASTHENIA [None]
  - FATIGUE [None]
  - HERPES VIRUS INFECTION [None]
  - EPSTEIN-BARR VIRUS ASSOCIATED LYMPHOPROLIFERATIVE DISORDER [None]
  - RENAL NEOPLASM [None]
  - OMENTUM NEOPLASM [None]
  - CYTOMEGALOVIRUS HEPATITIS [None]
  - HAEMOBILIA [None]
  - PLEURAL EFFUSION [None]
  - PLEURAL NEOPLASM [None]
  - ASCITES [None]
